FAERS Safety Report 8450195-8 (Version None)
Quarter: 2012Q2

REPORT INFORMATION
  Report Type: 
  Country: None (occurrence: None)
  Receive Date: 20120620
  Receipt Date: 20120612
  Transmission Date: 20120825
  Serious: Yes (Hospitalization)
  Sender: FDA-Public Use
  Company Number: US-BAYER-2011-032918

PATIENT
  Age: 45 Year
  Sex: Female
  Weight: 83.447 kg

DRUGS (4)
  1. RESTORIL [Concomitant]
  2. YASMIN [Suspect]
     Indication: CONTRACEPTION
     Dosage: 25 MG, QD
     Route: 048
     Dates: start: 20031227, end: 20051126
  3. HYDROCHLOROTHIAZIDE [Concomitant]
     Indication: HYPERTENSION
     Dosage: 25 MG, QD
  4. MOTRIN [Concomitant]
     Dosage: 800 MG, TID

REACTIONS (3)
  - PAIN [None]
  - MYOCARDIAL INFARCTION [None]
  - INJURY [None]
